FAERS Safety Report 7468738-X (Version None)
Quarter: 2011Q2

REPORT INFORMATION
  Report Type: 
  Country: None (occurrence: None)
  Receive Date: 20110510
  Receipt Date: 20110422
  Transmission Date: 20111010
  Serious: No
  Sender: FDA-Public Use
  Company Number: US-BIOGENIDEC-2011BI015124

PATIENT
  Age: 39 Year
  Sex: Female

DRUGS (2)
  1. TYSABRI [Suspect]
     Indication: MULTIPLE SCLEROSIS
     Route: 042
     Dates: start: 20090331, end: 20090428
  2. TYSABRI [Suspect]
     Route: 042
     Dates: start: 20100311, end: 20110119

REACTIONS (5)
  - LOSS OF CONSCIOUSNESS [None]
  - CROHN'S DISEASE [None]
  - MULTIPLE SCLEROSIS RELAPSE [None]
  - GLAUCOMA [None]
  - MEMORY IMPAIRMENT [None]
